FAERS Safety Report 10928945 (Version 1)
Quarter: 2015Q1

REPORT INFORMATION
  Report Type: Spontaneous
  Country: US (occurrence: None)
  Receive Date: 20150206
  Receipt Date: 20150206
  Transmission Date: 20150721
  Serious: No
  Sender: FDA-Public Use
  Company Number: 1411USA001704

PATIENT
  Sex: Male
  Weight: 93.9 kg

DRUGS (1)
  1. GRASTEK [Suspect]
     Active Substance: PHLEUM PRATENSE POLLEN
     Dosage: TOTAL DAILY DOSE
     Route: 060

REACTIONS (1)
  - Swollen tongue [None]
